FAERS Safety Report 24178769 (Version 1)
Quarter: 2024Q3

REPORT INFORMATION
  Report Type: Spontaneous
  Country: US (occurrence: None)
  Receive Date: 20240806
  Receipt Date: 20240806
  Transmission Date: 20241016
  Serious: No
  Sender: ASTRAZENECA
  Company Number: 2024A175918

PATIENT
  Age: 76 Year
  Sex: Male

DRUGS (2)
  1. SEROQUEL [Interacting]
     Active Substance: QUETIAPINE FUMARATE
     Route: 048
  2. NUPLAZID [Interacting]
     Active Substance: PIMAVANSERIN TARTRATE
     Indication: Parkinson^s disease psychosis
     Route: 048

REACTIONS (6)
  - Drug interaction [Recovered/Resolved]
  - Mobility decreased [Recovered/Resolved]
  - Hallucination [Not Recovered/Not Resolved]
  - Drug ineffective [Not Recovered/Not Resolved]
  - Therapeutic product effect delayed [Recovered/Resolved]
  - Adverse reaction [Unknown]
